FAERS Safety Report 6434958-6 (Version None)
Quarter: 2009Q4

REPORT INFORMATION
  Report Type: 
  Country: None (occurrence: None)
  Receive Date: 20091105
  Receipt Date: 20091105
  Transmission Date: 20100525
  Serious: Yes (Life-Threatening, Hospitalization, Other)
  Sender: FDA-Public Use
  Company Number: None

PATIENT
  Age: 32 Year
  Sex: Male
  Weight: 117.9352 kg

DRUGS (1)
  1. M-DROL 10 MG COMPETITIVE EDGE LABS LLC [Suspect]
     Indication: SUPPLEMENTATION THERAPY
     Dosage: 1-2 CAPSULES PER DAY PO
     Route: 048
     Dates: start: 20090514, end: 20090611

REACTIONS (2)
  - BEDRIDDEN [None]
  - HEPATIC FAILURE [None]
